FAERS Safety Report 11363478 (Version 1)
Quarter: 2015Q3

REPORT INFORMATION
  Report Type: Spontaneous
  Country: IT (occurrence: IT)
  Receive Date: 20150811
  Receipt Date: 20150811
  Transmission Date: 20151125
  Serious: Yes (Other)
  Sender: FDA-Public Use
  Company Number: IT-ACCORD-032785

PATIENT
  Sex: Male

DRUGS (1)
  1. DOCETAXEL. [Suspect]
     Active Substance: DOCETAXEL
     Indication: HORMONE-REFRACTORY PROSTATE CANCER
     Dosage: ANHYDROUS.
     Route: 042
     Dates: start: 20150708, end: 20150708

REACTIONS (4)
  - Leukopenia [Recovering/Resolving]
  - Gastrointestinal disorder [Recovering/Resolving]
  - Fatigue [Recovering/Resolving]
  - Myalgia [Recovering/Resolving]

NARRATIVE: CASE EVENT DATE: 20150710
